FAERS Safety Report 8560489-3 (Version None)
Quarter: 2012Q3

REPORT INFORMATION
  Report Type: 
  Country: None (occurrence: None)
  Receive Date: 20120723
  Receipt Date: 20120711
  Transmission Date: 20120928
  Serious: Yes (Death, Hospitalization, Congenital Anomaly)
  Sender: FDA-Public Use
  Company Number: VAL_00790_2012

PATIENT
  Age: 25 Year
  Sex: Female

DRUGS (2)
  1. FOLIC ACID [Concomitant]
  2. CARBAMAZEPINE [Suspect]
     Indication: EPILEPSY
     Dosage: 300 MG, (DAILY)

REACTIONS (23)
  - HYDRONEPHROSIS [None]
  - PREMATURE RUPTURE OF MEMBRANES [None]
  - VIITH NERVE PARALYSIS [None]
  - MICROCEPHALY [None]
  - ANAL ATRESIA [None]
  - PROTEIN TOTAL DECREASED [None]
  - DYSMORPHISM [None]
  - HIGH ARCHED PALATE [None]
  - MUSCULOSKELETAL DISORDER [None]
  - OLIGOHYDRAMNIOS [None]
  - PROMINENT EPICANTHAL FOLDS [None]
  - ADACTYLY [None]
  - TALIPES [None]
  - MATERNAL EXPOSURE DURING PREGNANCY [None]
  - PREGNANCY [None]
  - MICROGNATHIA [None]
  - GENITALIA EXTERNAL AMBIGUOUS [None]
  - SCOLIOSIS [None]
  - LOW SET EARS [None]
  - RENAL APLASIA [None]
  - RENAL FAILURE [None]
  - TOOTH DEVELOPMENT DISORDER [None]
  - MATERNAL DRUGS AFFECTING FOETUS [None]
